FAERS Safety Report 22647553 (Version 1)
Quarter: 2023Q2

REPORT INFORMATION
  Report Type: Spontaneous
  Country: US (occurrence: US)
  Receive Date: 20230628
  Receipt Date: 20230628
  Transmission Date: 20230722
  Serious: Yes (Other)
  Sender: FDA-Public Use
  Company Number: US-BRISTOL-MYERS SQUIBB COMPANY-2023-090601

PATIENT
  Age: 79 Year
  Sex: Female

DRUGS (2)
  1. REVLIMID [Suspect]
     Active Substance: LENALIDOMIDE
     Indication: Follicular lymphoma
     Dosage: 1 A DAY FOR 21 DAYS THEN 7 DAY OFF
     Route: 048
     Dates: start: 202304
  2. REVLIMID [Suspect]
     Active Substance: LENALIDOMIDE
     Route: 048
     Dates: start: 202304

REACTIONS (3)
  - Haemorrhage [Recovered/Resolved]
  - Oropharyngeal pain [Unknown]
  - Oral pain [Unknown]

NARRATIVE: CASE EVENT DATE: 20230101
